FAERS Safety Report 6574791-8 (Version None)
Quarter: 2010Q1

REPORT INFORMATION
  Report Type: 
  Country: None (occurrence: None)
  Receive Date: 20100209
  Receipt Date: 20100126
  Transmission Date: 20100710
  Serious: Yes (Hospitalization)
  Sender: FDA-Public Use
  Company Number: PHEH2009US16276

PATIENT
  Sex: Female

DRUGS (3)
  1. EXJADE [Suspect]
     Indication: LYMPHATIC DISORDER
     Dosage: 1000-1500 MG, QD ALTERNATING
     Route: 048
     Dates: start: 20090401
  2. EXJADE [Suspect]
     Indication: BLOOD DISORDER
  3. NEUPOGEN [Concomitant]

REACTIONS (9)
  - ABSCESS [None]
  - ABSCESS DRAINAGE [None]
  - ANXIETY [None]
  - ARTHRALGIA [None]
  - BACK PAIN [None]
  - CONFUSIONAL STATE [None]
  - DIARRHOEA [None]
  - RESPIRATION ABNORMAL [None]
  - WOUND INFECTION STAPHYLOCOCCAL [None]
